FAERS Safety Report 6675786-6 (Version None)
Quarter: 2010Q2

REPORT INFORMATION
  Report Type: 
  Country: None (occurrence: None)
  Receive Date: 20100412
  Receipt Date: 20100406
  Transmission Date: 20101027
  Serious: Yes (Hospitalization)
  Sender: FDA-Public Use
  Company Number: US-BIOGENIDEC-2010BI002950

PATIENT
  Age: 45 Year
  Sex: Female
  Weight: 50 kg

DRUGS (17)
  1. TYSABRI [Suspect]
     Indication: MULTIPLE SCLEROSIS
     Route: 042
     Dates: start: 20080416
  2. ENABLEX [Concomitant]
     Indication: BLADDER SPASM
     Route: 048
     Dates: start: 20060101
  3. SYNTHROID [Concomitant]
     Indication: HYPOTHYROIDISM
     Route: 048
     Dates: start: 19850101
  4. VALIUM [Concomitant]
     Indication: SLEEP DISORDER
     Route: 048
     Dates: start: 20081001
  5. LEXAPRO [Concomitant]
     Indication: DEPRESSION
     Route: 048
     Dates: start: 20090601
  6. TUSSIONEX PENNKINETIC ER [Concomitant]
     Route: 048
  7. AMITIZA [Concomitant]
     Route: 048
  8. AMITIZA [Concomitant]
     Route: 048
  9. CORRECTOL [Concomitant]
     Route: 048
  10. ASPIRIN [Concomitant]
     Route: 048
  11. BACLOFEN [Concomitant]
     Route: 048
  12. ALOE VESTA [Concomitant]
  13. BISACODYL [Concomitant]
     Route: 054
  14. ZITHROMAX [Concomitant]
     Route: 048
  15. FLEXERIL [Concomitant]
     Route: 048
  16. ZANAFLEX [Concomitant]
     Route: 048
  17. CALMOSEPTINE [Concomitant]

REACTIONS (2)
  - DECUBITUS ULCER [None]
  - PNEUMONIA [None]
